FAERS Safety Report 10847503 (Version 1)
Quarter: 2015Q1

REPORT INFORMATION
  Report Type: Spontaneous
  Country: US (occurrence: US)
  Receive Date: 20150220
  Receipt Date: 20150220
  Transmission Date: 20150721
  Serious: Yes (Hospitalization, Other)
  Sender: FDA-Public Use
  Company Number: US-ABBVIE-15P-163-1347750-00

PATIENT
  Age: 72 Year
  Sex: Female
  Weight: 61.29 kg

DRUGS (3)
  1. POTASSIUM [Suspect]
     Active Substance: POTASSIUM
     Indication: PRODUCT USED FOR UNKNOWN INDICATION
     Route: 065
  2. REMODULIN [Suspect]
     Active Substance: TREPROSTINIL
     Indication: PULMONARY HYPERTENSION
     Dosage: IV DRIP
     Route: 042
     Dates: start: 20141112
  3. FOLAN [Suspect]
     Active Substance: FOLIC ACID
     Indication: COR PULMONALE CHRONIC
     Dosage: POWDER
     Route: 042
     Dates: start: 20070327

REACTIONS (9)
  - Gastric disorder [Unknown]
  - Nervousness [Unknown]
  - Oedema peripheral [Unknown]
  - Weight increased [Unknown]
  - Blood potassium decreased [Unknown]
  - Diarrhoea [Unknown]
  - Blood urine present [Unknown]
  - Fall [Unknown]
  - Oedema peripheral [Unknown]

NARRATIVE: CASE EVENT DATE: 201411
